FAERS Safety Report 5757363-4 (Version None)
Quarter: 2008Q2

REPORT INFORMATION
  Report Type: 
  Country: None (occurrence: None)
  Receive Date: 20080529
  Receipt Date: 20080513
  Transmission Date: 20081010
  Serious: Yes (Hospitalization)
  Sender: FDA-Public Use
  Company Number: DSA_31865_2008

PATIENT
  Sex: Male

DRUGS (22)
  1. ATIVAN [Suspect]
     Indication: ANXIETY
     Dosage: 1 MG TID
     Dates: start: 20070831, end: 20080315
  2. CETUXIMAB [Suspect]
     Indication: NON-SMALL CELL LUNG CANCER
     Dosage: 250 MG/M2 1X/WEEK FOURTH DOSE INTRAVENOUS (NOT OTHERWISE SPECIFIED, (DF (INTRAVENOUS SPECIFIED)
     Route: 042
     Dates: start: 20080219, end: 20080219
  3. CETUXIMAB [Suspect]
     Indication: NON-SMALL CELL LUNG CANCER
     Dosage: 250 MG/M2 1X/WEEK FOURTH DOSE INTRAVENOUS (NOT OTHERWISE SPECIFIED, (DF (INTRAVENOUS SPECIFIED)
     Route: 042
     Dates: start: 20071211
  4. PEMETREXTED DISODIUM [Suspect]
     Indication: NON-SMALL CELL LUNG CANCER
     Dosage: 500 MG/M2; ELEVENTH DOSE INTRAVENOUS (NO OTHERWISE SPECIFIED), (DF INTRAVENOUS)
     Route: 042
     Dates: start: 20080212, end: 20080212
  5. PEMETREXTED DISODIUM [Suspect]
     Indication: NON-SMALL CELL LUNG CANCER
     Dosage: 500 MG/M2; ELEVENTH DOSE INTRAVENOUS (NO OTHERWISE SPECIFIED), (DF INTRAVENOUS)
     Route: 042
     Dates: start: 20071207
  6. ALBUTEROL [Concomitant]
  7. SPIRIVA [Concomitant]
  8. CHLORASEPTIC [Concomitant]
  9. COLACE [Concomitant]
  10. SENNA [Concomitant]
  11. NEXIUM [Concomitant]
  12. MS CONTIN [Concomitant]
  13. NORCO [Concomitant]
  14. DIFLUCAN [Concomitant]
  15. DOXYCYCLINE [Concomitant]
  16. VICODIN [Concomitant]
  17. AZITHROMYCIN [Concomitant]
  18. MEGACE [Concomitant]
  19. TUSSIONEX [Concomitant]
  20. ANTIBIOTICS [Concomitant]
  21. PHENERGAN [Concomitant]
  22. IPRATROPIUM BROMIDE [Concomitant]

REACTIONS (7)
  - GENERAL PHYSICAL HEALTH DETERIORATION [None]
  - INCOHERENT [None]
  - LOBAR PNEUMONIA [None]
  - LOCALISED OEDEMA [None]
  - LUNG INFILTRATION [None]
  - MENTAL STATUS CHANGES [None]
  - OEDEMA PERIPHERAL [None]
